FAERS Safety Report 10433868 (Version 1)
Quarter: 2014Q3

REPORT INFORMATION
  Report Type: Spontaneous
  Country: US (occurrence: None)
  Receive Date: 20140815
  Receipt Date: 20140815
  Transmission Date: 20150326
  Serious: No
  Sender: FDA-Public Use
  Company Number: A-US2014-100414

PATIENT
  Age: 23 Year
  Sex: Female

DRUGS (6)
  1. REVATIO (SILDENAFIL CITRATE) [Concomitant]
  2. VITAMIN C [Concomitant]
     Active Substance: ASCORBIC ACID
  3. OPSUMIT [Suspect]
     Active Substance: MACITENTAN
     Indication: PULMONARY ARTERIAL HYPERTENSION
     Route: 048
     Dates: start: 201404
  4. FISH OIL (FISH OIL, TOCOPHERYL ACETATE) [Concomitant]
  5. ASPIRIN (ACETYLSALICYLIC ACID) [Concomitant]
     Active Substance: ASPIRIN
  6. MULTIVITAMIN (ASCORBIC ACID, BIOTIN, FOLIC ACID, NICOTINIC ACID, PANTOTHENIC ACID, PYRIDOXINE HYDROCHLORIDE, RETINOL, RIBOFLAVIN, THIAMINE HYDROCHLORIDE, TOCOPHEROL, VITAMIN B12 NOS, VITAMIN D NOS, VITAMIN K NOS) [Concomitant]

REACTIONS (1)
  - Nasal congestion [None]

NARRATIVE: CASE EVENT DATE: 201405
